FAERS Safety Report 17816409 (Version 2)
Quarter: 2020Q2

REPORT INFORMATION
  Report Type: Spontaneous
  Country: US (occurrence: US)
  Receive Date: 20200522
  Receipt Date: 20200522
  Transmission Date: 20200714
  Serious: No
  Sender: FDA-Public Use
  Company Number: US-PFIZER INC-2020199259

PATIENT
  Sex: Male

DRUGS (2)
  1. GABAPENTIN. [Suspect]
     Active Substance: GABAPENTIN
     Dosage: UNK, ALTERNATE DAY (TAKING ALTERNATIVELY,NOT ON THE SAME DAY)/(AT NIGHT BEFORE BEDTIME)
  2. GRALISE [Suspect]
     Active Substance: GABAPENTIN
     Dosage: UNK, ALTERNATE DAY (TAKING ALTERNATIVELY,NOT ON THE SAME DAY)/(AT NIGHT BEFORE BEDTIME)

REACTIONS (2)
  - Dizziness [Unknown]
  - Nausea [Unknown]
